FAERS Safety Report 9900151 (Version 2)
Quarter: 2014Q1

REPORT INFORMATION
  Report Type: Report from Study
  Country: JP (occurrence: JP)
  Receive Date: 20140214
  Receipt Date: 20140214
  Transmission Date: 20141002
  Serious: Yes (Hospitalization)
  Sender: FDA-Public Use
  Company Number: JP-TAKEDA-TCI2013A02985

PATIENT
  Age: 61 Year
  Sex: Male

DRUGS (7)
  1. TAKEPRON OD TABLETS 15 [Suspect]
     Indication: PROPHYLAXIS AGAINST GASTROINTESTINAL ULCER
     Dosage: 15 MG, QD
     Route: 048
     Dates: start: 20111011
  2. ALINAMIN-F [Concomitant]
     Indication: INTERVERTEBRAL DISC PROTRUSION
     Dosage: 75 MG, 1DAYS
     Route: 048
  3. LOXOPROFEN EMEC [Concomitant]
     Indication: INTERVERTEBRAL DISC PROTRUSION
     Dosage: 180 MG, 1 DAYS
     Route: 048
  4. EPENARD [Concomitant]
     Indication: INTERVERTEBRAL DISC PROTRUSION
     Dosage: 150 MG, 1DAYS
     Route: 048
  5. EPENARD [Concomitant]
     Route: 048
  6. REBAMIPIDE EMEC [Concomitant]
     Dosage: 300 MG, 1DAYS
     Route: 048
  7. SHAKUYAKUKANZOTO [Concomitant]
     Indication: MUSCLE SPASMS
     Dosage: 2.5 G, 1DAYS
     Route: 048

REACTIONS (1)
  - Cervical myelopathy [Recovered/Resolved with Sequelae]
